FAERS Safety Report 7733290-8 (Version None)
Quarter: 2011Q3

REPORT INFORMATION
  Report Type: 
  Country: None (occurrence: None)
  Receive Date: 20110902
  Receipt Date: 20110902
  Transmission Date: 20111222
  Serious: Yes (Other)
  Sender: FDA-Public Use
  Company Number: None

PATIENT
  Age: 56 Year
  Sex: Female
  Weight: 57.1532 kg

DRUGS (3)
  1. ARTHROTEC [Suspect]
     Indication: JOINT STIFFNESS
     Dosage: 1 TABLET TWICE A DAY BY MOUTH EC 75MG - 200MG TAB
     Route: 048
     Dates: start: 20110803
  2. ARTHROTEC [Suspect]
     Indication: ARTHRITIS
     Dosage: 1 TABLET TWICE A DAY BY MOUTH EC 75MG - 200MG TAB
     Route: 048
     Dates: start: 20110803
  3. ARTHROTEC [Suspect]
     Indication: JOINT SWELLING
     Dosage: 1 TABLET TWICE A DAY BY MOUTH EC 75MG - 200MG TAB
     Route: 048
     Dates: start: 20110803

REACTIONS (5)
  - DEPRESSED MOOD [None]
  - DISCOMFORT [None]
  - FEELING ABNORMAL [None]
  - ABDOMINAL PAIN [None]
  - ABDOMINAL DISCOMFORT [None]
